FAERS Safety Report 17114286 (Version 1)
Quarter: 2019Q4

REPORT INFORMATION
  Report Type: Spontaneous
  Country: US (occurrence: US)
  Receive Date: 20191205
  Receipt Date: 20191205
  Transmission Date: 20200122
  Serious: Yes (Other)
  Sender: FDA-Public Use
  Company Number: US-EMCURE PHARMACEUTICALS LTD-2019-EPL-1164

PATIENT
  Age: 12 Year
  Sex: Male

DRUGS (2)
  1. TEMOZOLOMIDE. [Suspect]
     Active Substance: TEMOZOLOMIDE
     Indication: NEUROBLASTOMA
     Dosage: 2 CYCLES OF TEMOZOLOMIDE AND IRINOTECAN
  2. IRINOTECAN HYDROCHLORIDE. [Suspect]
     Active Substance: IRINOTECAN HYDROCHLORIDE
     Indication: NEUROBLASTOMA
     Dosage: 2 CYCLES OF TEMOZOLOMIDE AND IRINOTECAN

REACTIONS (6)
  - Bladder cyst [Unknown]
  - Off label use [Unknown]
  - Disease progression [Unknown]
  - Respiratory failure [Unknown]
  - Treatment failure [Unknown]
  - Renal failure [Unknown]
